FAERS Safety Report 4848114-6 (Version None)
Quarter: 2005Q4

REPORT INFORMATION
  Report Type: 
  Country: None (occurrence: None)
  Receive Date: 20051205
  Receipt Date: 20051128
  Transmission Date: 20060501
  Serious: Yes (Other)
  Sender: FDA-Public Use
  Company Number: HQWYE737229NOV05

PATIENT
  Age: 70 Year
  Sex: Male

DRUGS (2)
  1. ANCARON (AMIODARONE, TABLET) [Suspect]
     Route: 048
  2. UNSPECIFIED BETA BLOCKER (UNSPECIFIED BETA BLOCKER) [Concomitant]

REACTIONS (1)
  - LEUKOCYTOSIS [None]
